FAERS Safety Report 9192657 (Version 2)
Quarter: 2013Q1

REPORT INFORMATION
  Report Type: Spontaneous
  Country: GB (occurrence: None)
  Receive Date: 20130325
  Receipt Date: 20130328
  Transmission Date: 20140127
  Serious: Yes (Other)
  Sender: FDA-Public Use
  Company Number: AUR-APL-2013-02487

PATIENT
  Age: 33 Year
  Sex: Female
  Weight: 71.66 kg

DRUGS (10)
  1. MIRTAZAPINE [Suspect]
     Indication: ANXIETY
     Route: 048
     Dates: start: 20120408, end: 20130221
  2. MIRTAZAPINE [Suspect]
     Indication: DEPRESSION
     Route: 048
     Dates: start: 20120408, end: 20130221
  3. MIRTAZAPINE [Suspect]
     Indication: PANIC ATTACK
     Route: 048
     Dates: start: 20120408, end: 20130221
  4. BUSCOPAN (HYOSCINE BUTYLBROMIDE) [Concomitant]
  5. CLONAZEPAM (CLONAZEPAM) (CLONAZEPAM) [Concomitant]
  6. CODEINE (CODEINE) [Concomitant]
  7. MEFENAMIC ACID (MEFENAMIC ACID) [Concomitant]
  8. PROMETHAZINE HYDROCHLORIDE (PROMETHAZINE HYDROCHLORIDE) [Concomitant]
  9. SEROQUEL XL (QUETIAPINE FUMARATE) [Concomitant]
  10. ZOPICLONE (ZOPICLONE) [Concomitant]

REACTIONS (6)
  - Suicidal ideation [None]
  - Bipolar disorder [None]
  - Withdrawal syndrome [None]
  - Mania [None]
  - Fear [None]
  - Depressed mood [None]
